FAERS Safety Report 9215082 (Version 3)
Quarter: 2013Q2

REPORT INFORMATION
  Report Type: Spontaneous
  Country: MX (occurrence: MX)
  Receive Date: 20130405
  Receipt Date: 20130507
  Transmission Date: 20140414
  Serious: Yes (Death)
  Sender: FDA-Public Use
  Company Number: MX-COVIDIEN/TYCO HEALTHCARE/MALLINCKRODT-T201301536

PATIENT
  Age: 59 Year
  Sex: Female

DRUGS (5)
  1. OPTIMARK [Suspect]
     Indication: NUCLEAR MAGNETIC RESONANCE IMAGING
     Dosage: 8 ML, SINGLE
     Route: 042
     Dates: start: 20130214, end: 20130214
  2. TRAMADOL [Interacting]
     Indication: PAIN
     Dosage: 50 MG, 8 HOURS
     Route: 042
     Dates: start: 20130213, end: 20130214
  3. ONDASETRON                         /00955301/ [Concomitant]
     Indication: MALAISE
     Dosage: 8 MG, 8 HOURS
     Route: 042
     Dates: start: 20130213, end: 20130214
  4. METOCLOPRAMIDE [Concomitant]
     Indication: MALAISE
     Dosage: 10 MG, 8 HOURS
     Route: 042
     Dates: start: 20130213, end: 20130214
  5. DEXAMETHASONE [Concomitant]
     Indication: PRODUCT USED FOR UNKNOWN INDICATION
     Dosage: 8 MG, 8 HOURS
     Route: 042
     Dates: start: 20130213, end: 20130214

REACTIONS (1)
  - Anaphylactic shock [Fatal]
